FAERS Safety Report 7707806-1 (Version None)
Quarter: 2011Q3

REPORT INFORMATION
  Report Type: 
  Country: None (occurrence: None)
  Receive Date: 20110824
  Receipt Date: 20110818
  Transmission Date: 20111222
  Serious: Yes (Other)
  Sender: FDA-Public Use
  Company Number: US-ABBOTT-11P-163-0844051-00

PATIENT
  Sex: Female
  Weight: 104.42 kg

DRUGS (14)
  1. CALCITRIOL [Concomitant]
     Indication: PARATHYROID DISORDER
  2. FUROSEMIDE [Concomitant]
     Indication: FLUID RETENTION
  3. TYLENOL-500 [Concomitant]
     Indication: OSTEOARTHRITIS
  4. TYLENOL-500 [Concomitant]
     Indication: RHEUMATOID ARTHRITIS
  5. SODIUM BICARBONATE [Concomitant]
     Indication: RENAL DISORDER
  6. VITAMIN D [Concomitant]
     Indication: VITAMIN SUPPLEMENTATION
  7. VITAMIN B-12 [Concomitant]
     Indication: VITAMIN SUPPLEMENTATION
  8. LISINOPRIL [Concomitant]
     Indication: HYPERTENSION
  9. ASPIRIN [Concomitant]
     Dates: start: 20100101
  10. HUMIRA [Suspect]
     Dates: start: 20100701
  11. FUROSEMIDE [Concomitant]
     Indication: HYPERTENSION
  12. HUMIRA [Suspect]
     Indication: RHEUMATOID ARTHRITIS
     Dates: start: 20090101
  13. HUMIRA [Suspect]
     Dates: start: 20090101
  14. ASPIRIN [Concomitant]
     Indication: PROPHYLAXIS

REACTIONS (3)
  - VIRAL INFECTION [None]
  - SUDDEN HEARING LOSS [None]
  - DEAFNESS [None]
